FAERS Safety Report 7990691-0 (Version None)
Quarter: 2011Q4

REPORT INFORMATION
  Report Type: 
  Country: None (occurrence: None)
  Receive Date: 20111219
  Receipt Date: 20111212
  Transmission Date: 20120403
  Serious: Yes (Hospitalization, Other)
  Sender: FDA-Public Use
  Company Number: US-B.I. PHARMACEUTICALS,INC./RIDGEFIELD-2011-BP-27960BP

PATIENT

DRUGS (11)
  1. METOPROLOL TARTRATE [Concomitant]
     Indication: ANEURYSM
  2. TRAVASTAN [Concomitant]
     Indication: GLAUCOMA
  3. LOVAZA [Concomitant]
     Indication: VITAMIN SUPPLEMENTATION
  4. CALCIUM [Concomitant]
     Indication: VITAMIN SUPPLEMENTATION
  5. VITAMIN D [Concomitant]
     Indication: HYPERPARATHYROIDISM
  6. PRADAXA [Suspect]
     Indication: ATRIAL FIBRILLATION
     Dosage: 150 MG
     Route: 048
  7. AMIODARONE HCL [Concomitant]
     Indication: ARRHYTHMIA
  8. ASPIRIN [Concomitant]
     Indication: CARDIAC DISORDER
  9. ALPHAGAN [Concomitant]
     Indication: GLAUCOMA
  10. SYNTHROID [Concomitant]
     Indication: HYPOTHYROIDISM
  11. CRESTOR [Concomitant]
     Indication: BLOOD CHOLESTEROL INCREASED

REACTIONS (2)
  - ABDOMINAL DISCOMFORT [None]
  - GASTROOESOPHAGEAL REFLUX DISEASE [None]
